FAERS Safety Report 6719972-5 (Version None)
Quarter: 2010Q2

REPORT INFORMATION
  Report Type: 
  Country: None (occurrence: None)
  Receive Date: 20100511
  Receipt Date: 20100507
  Transmission Date: 20101027
  Serious: Yes (Life-Threatening, Hospitalization, Other)
  Sender: FDA-Public Use
  Company Number: JP-BAYER-200913179BYL

PATIENT
  Age: 56 Year
  Sex: Male
  Weight: 71 kg

DRUGS (12)
  1. NEXAVAR [Suspect]
     Indication: HEPATIC NEOPLASM MALIGNANT
     Dosage: UNIT DOSE: 200 MG
     Route: 048
     Dates: start: 20090601, end: 20091021
  2. BARACLUDE [Concomitant]
     Dosage: FROM BEFORE ADMINISTRATION
     Route: 048
  3. PARIET [Concomitant]
     Dosage: FROM BEFORE ADMINISTRATION
     Route: 048
  4. URALYT [Concomitant]
     Indication: HYPERURICAEMIA
     Dosage: FROM BEFORE ADMINISTRATION
     Route: 048
  5. URINORM [Concomitant]
     Indication: HYPERURICAEMIA
     Dosage: FROM BEFORE ADMINISTRATION
     Route: 048
  6. ALFAROL [Concomitant]
     Dosage: FROM BEFORE ADMINISTRATION
     Route: 048
  7. PROCHLORPERAZINE [Concomitant]
     Indication: ADVERSE DRUG REACTION
     Route: 048
     Dates: start: 20090525
  8. OXYCONTIN [Concomitant]
     Indication: PAIN
     Dosage: 10-30MG/DAY
     Route: 048
     Dates: start: 20090525
  9. MAGNESIUM OXIDE [Concomitant]
     Indication: ADVERSE DRUG REACTION
     Route: 048
     Dates: start: 20090525
  10. PANTOSIN [Concomitant]
     Indication: ADVERSE DRUG REACTION
     Dosage: FROM BEFORE ADMINISTRATION
     Route: 048
     Dates: start: 20090525
  11. LAXOBERON [Concomitant]
     Indication: ADVERSE DRUG REACTION
     Route: 048
     Dates: start: 20090614
  12. UREPEARL [Concomitant]
     Indication: PROPHYLAXIS
     Route: 061
     Dates: start: 20090602

REACTIONS (13)
  - ALOPECIA [None]
  - ANAEMIA [None]
  - ASCITES [None]
  - C-REACTIVE PROTEIN INCREASED [None]
  - DECREASED APPETITE [None]
  - HYPERTENSION [None]
  - HYPOALBUMINAEMIA [None]
  - INSOMNIA [None]
  - NEUTROPHIL COUNT INCREASED [None]
  - PANCYTOPENIA [None]
  - PYREXIA [None]
  - RASH [None]
  - RENAL DISORDER [None]
